FAERS Safety Report 5339712-4 (Version None)
Quarter: 2007Q2

REPORT INFORMATION
  Report Type: 
  Country: None (occurrence: None)
  Receive Date: 20070404
  Receipt Date: 20061020
  Transmission Date: 20071010
  Serious: Yes (Hospitalization)
  Sender: FDA-Public Use
  Company Number: 2006114766

PATIENT
  Age: 52 Year
  Sex: Male
  Weight: 70.3075 kg

DRUGS (8)
  1. GEODON [Suspect]
     Indication: SCHIZOAFFECTIVE DISORDER
     Dosage: 160 MG (80 MG, 2 IN 1 D), ORAL
     Route: 048
     Dates: start: 20060728
  2. ALL OTHER THERAPEUTIC PRODUCTS [ALL OTHER THERAPEUTIC PRODUCTS] [Concomitant]
  3. DEPAKOTE [Concomitant]
  4. LORAZEPAM [Concomitant]
  5. DIPHENHYDRAMINE HCL [Concomitant]
  6. MULTIVITAMIN [Concomitant]
  7. VITAMIN B1 TAB [Concomitant]
  8. BENZTROPINE MESYLATE [Concomitant]

REACTIONS (1)
  - DRUG INEFFECTIVE [None]
